FAERS Safety Report 4414416-0 (Version None)
Quarter: 2004Q3

REPORT INFORMATION
  Report Type: 
  Country: None (occurrence: None)
  Receive Date: 20040702
  Receipt Date: 20021125
  Transmission Date: 20050211
  Serious: Yes (Other)
  Sender: FDA-Public Use
  Company Number: TOR 2002-0073

PATIENT
  Age: 63 Year
  Sex: Female
  Weight: 115 kg

DRUGS (5)
  1. FARESTON (UNKNOWN)  (TOREMIFENE) [Suspect]
     Indication: BREAST CANCER
     Dosage: 60 MG, ORAL
     Route: 048
     Dates: start: 20000721, end: 20021104
  2. HYDROCHLOROTHIAZIDE(UNKNOWN) [Suspect]
     Indication: BLOOD PRESSURE INCREASED
     Dosage: ORAL
     Route: 048
  3. LIPITOR [Suspect]
     Indication: BLOOD CHOLESTEROL INCREASED
     Dosage: ORAL
     Route: 048
  4. INSULIN(UNKNOWN) [Suspect]
     Indication: BLOOD GLUCOSE INCREASED
     Dosage: OTHER
  5. GLUCOPHAGE (UNKNOWN) [Suspect]
     Indication: BLOOD GLUCOSE INCREASED
     Dosage: ORAL
     Route: 048

REACTIONS (1)
  - ENDOMETRIAL CANCER [None]
